FAERS Safety Report 24561769 (Version 1)
Quarter: 2024Q4

REPORT INFORMATION
  Report Type: Spontaneous
  Country: US (occurrence: None)
  Receive Date: 20241029
  Receipt Date: 20241029
  Transmission Date: 20250115
  Serious: No
  Sender: Public
  Company Number: None

PATIENT
  Age: 69 Year
  Sex: Male
  Weight: 63 kg

DRUGS (5)
  1. PAXLOVID [Suspect]
     Active Substance: NIRMATRELVIR\RITONAVIR
     Indication: COVID-19
     Dates: start: 20241022, end: 20241027
  2. PRAVASTATIN [Concomitant]
     Active Substance: PRAVASTATIN
  3. CANNABIDIOL [Concomitant]
     Active Substance: CANNABIDIOL
  4. IBUPROFEN [Concomitant]
     Active Substance: IBUPROFEN
  5. FEXOFENADINE [Concomitant]
     Active Substance: FEXOFENADINE HYDROCHLORIDE

REACTIONS (5)
  - Dysgeusia [None]
  - Ageusia [None]
  - Diarrhoea [None]
  - Headache [None]
  - Brain fog [None]

NARRATIVE: CASE EVENT DATE: 20241024
